FAERS Safety Report 5454660-7 (Version None)
Quarter: 2007Q3

REPORT INFORMATION
  Report Type: 
  Country: None (occurrence: None)
  Receive Date: 20070917
  Receipt Date: 20060814
  Transmission Date: 20080115
  Serious: No
  Sender: FDA-Public Use
  Company Number: US-ASTRAZENECA-2006UW16184

PATIENT
  Sex: Female

DRUGS (1)
  1. SEROQUEL [Suspect]
     Indication: DEPRESSION
     Dosage: DTARTER PACK
     Route: 048
     Dates: start: 20060814

REACTIONS (1)
  - ILL-DEFINED DISORDER [None]
